FAERS Safety Report 5154289-4 (Version None)
Quarter: 2006Q4

REPORT INFORMATION
  Report Type: 
  Country: None (occurrence: None)
  Receive Date: 20061114
  Receipt Date: 20061113
  Transmission Date: 20070319
  Serious: Yes (Death, Hospitalization)
  Sender: FDA-Public Use
  Company Number: DK-2006-034269

PATIENT
  Age: 70 Year
  Sex: Female

DRUGS (3)
  1. MENOSTAR [Suspect]
     Indication: OSTEOPOROSIS PROPHYLAXIS
     Dosage: E2:0.014MG VS RALOXIFENE: 60MG PO, TRANSDERMAL; SEE IMAGE
     Route: 062
     Dates: start: 20040325
  2. CALCICHEW [Concomitant]
  3. DIAZEPAM [Concomitant]

REACTIONS (1)
  - CEREBROVASCULAR ACCIDENT [None]
